APPROVED DRUG PRODUCT: NYSTATIN
Active Ingredient: NYSTATIN
Strength: 100,000 UNITS/ML
Dosage Form/Route: SUSPENSION;ORAL
Application: A064142 | Product #001
Applicant: VISTAPHARM LLC
Approved: Jun 25, 1998 | RLD: No | RS: No | Type: DISCN